FAERS Safety Report 23875873 (Version 3)
Quarter: 2024Q3

REPORT INFORMATION
  Report Type: Spontaneous
  Country: US (occurrence: US)
  Receive Date: 20240520
  Receipt Date: 20240911
  Transmission Date: 20241017
  Serious: No
  Sender: SANOFI AVENTIS
  Company Number: US-SA-SAC20240513000944

PATIENT
  Age: 8 Year
  Sex: Male

DRUGS (3)
  1. DUPIXENT [Suspect]
     Active Substance: DUPILUMAB
     Indication: Eczema
     Dosage: 400 MG 1X
     Route: 058
     Dates: start: 20240227, end: 20240227
  2. DUPIXENT [Suspect]
     Active Substance: DUPILUMAB
     Dosage: 200MG QOW
     Route: 058
     Dates: start: 2024
  3. TRIAMCINOLONE [Concomitant]
     Active Substance: TRIAMCINOLONE
     Route: 061

REACTIONS (5)
  - Vomiting [Unknown]
  - Skin exfoliation [Unknown]
  - Eczema [Unknown]
  - Dry skin [Unknown]
  - Product dose omission issue [Unknown]

NARRATIVE: CASE EVENT DATE: 20240101
